FAERS Safety Report 8430650-7 (Version None)
Quarter: 2012Q2

REPORT INFORMATION
  Report Type: 
  Country: None (occurrence: None)
  Receive Date: 20120612
  Receipt Date: 20120607
  Transmission Date: 20120825
  Serious: Yes (Other)
  Sender: FDA-Public Use
  Company Number: FI-PFIZER INC-2012136954

PATIENT
  Sex: Male

DRUGS (1)
  1. SUTENT [Suspect]
     Dosage: 37.5 MG, D1-28
     Dates: start: 20080218, end: 20111207

REACTIONS (3)
  - HYPERTENSION [None]
  - MULTI-ORGAN FAILURE [None]
  - FATIGUE [None]
